FAERS Safety Report 6767917-4 (Version None)
Quarter: 2010Q2

REPORT INFORMATION
  Report Type: 
  Country: None (occurrence: None)
  Receive Date: 20100614
  Receipt Date: 20100602
  Transmission Date: 20101027
  Serious: Yes (Life-Threatening, Hospitalization, Other)
  Sender: FDA-Public Use
  Company Number: FR-SANOFI-AVENTIS-2010SA022495

PATIENT
  Age: 44 Year

DRUGS (6)
  1. OXALIPLATIN [Suspect]
     Indication: COLON CANCER
     Route: 041
     Dates: start: 20080522, end: 20080522
  2. OXALIPLATIN [Suspect]
     Route: 041
     Dates: start: 20080827, end: 20080827
  3. FLUOROURACIL [Suspect]
     Indication: COLON CANCER
     Route: 042
     Dates: start: 20080522, end: 20080523
  4. FLUOROURACIL [Suspect]
     Route: 042
     Dates: start: 20080813, end: 20080814
  5. FOLINIC ACID [Suspect]
     Indication: COLON CANCER
     Route: 041
     Dates: start: 20080522, end: 20080522
  6. FOLINIC ACID [Suspect]
     Route: 041
     Dates: start: 20080827, end: 20080827

REACTIONS (2)
  - CORONARY ARTERY STENOSIS [None]
  - EMBOLISM [None]
